FAERS Safety Report 13564130 (Version 3)
Quarter: 2017Q2

REPORT INFORMATION
  Report Type: Spontaneous
  Country: GB (occurrence: GB)
  Receive Date: 20170519
  Receipt Date: 20170607
  Transmission Date: 20170830
  Serious: Yes (Other)
  Sender: FDA-Public Use
  Company Number: GB-GLAXOSMITHKLINE-GB2017GSK072731

PATIENT
  Sex: Male

DRUGS (2)
  1. KEPPRA [Suspect]
     Active Substance: LEVETIRACETAM
     Indication: EPILEPSY
     Dosage: UNK
     Route: 065
  2. RETIGABINE [Suspect]
     Active Substance: EZOGABINE
     Indication: EPILEPSY
     Dosage: 100 MG, TID
     Route: 065

REACTIONS (2)
  - Malaise [Unknown]
  - Myelodysplastic syndrome [Unknown]
